FAERS Safety Report 8544876-5 (Version None)
Quarter: 2012Q3

REPORT INFORMATION
  Report Type: 
  Country: None (occurrence: None)
  Receive Date: 20120727
  Receipt Date: 20120720
  Transmission Date: 20120928
  Serious: Yes (Hospitalization)
  Sender: FDA-Public Use
  Company Number: US-ROCHE-1090636

PATIENT
  Age: 41 Year
  Sex: Female
  Weight: 101 kg

DRUGS (6)
  1. DOCETAXEL [Suspect]
     Indication: BREAST CANCER
     Dosage: DOSE:75MG/M2 OVER 60 MINUTES ON DAY1 FOR 6 CYCLE, DATE OF LAST DRUG TAKEN PRIOR TO ONSET OF AE:14/JU
     Route: 042
     Dates: start: 20120503
  2. SYNTHROID [Concomitant]
  3. XANAX [Concomitant]
  4. HERCEPTIN [Suspect]
     Indication: BREAST CANCER
     Dosage: DOSE:8MG/KG OVER 30MINS ON DAY1 FOR CYCLE1 ONLY,6MG/KG OVER 30-60MINS ON DAY1 CYLCE2-6,6MG/KG OVER 3
     Route: 042
     Dates: start: 20120503
  5. HERCEPTIN [Suspect]
     Route: 042
  6. CYCLOPHOSPHAMIDE [Suspect]
     Indication: BREAST CANCER
     Dosage: DOSE:600MG/M2 OVER 30 MINUTES ON DAY 1 FOR CYCLES 6, DATE OF LAST DRUG TAKEN PRIOR TO ONSET OF AE:14
     Route: 042
     Dates: start: 20120503

REACTIONS (1)
  - ERYTHEMA MULTIFORME [None]
